FAERS Safety Report 7685943-8 (Version None)
Quarter: 2011Q3

REPORT INFORMATION
  Report Type: 
  Country: None (occurrence: None)
  Receive Date: 20110816
  Receipt Date: 20110804
  Transmission Date: 20111222
  Serious: Yes (Other)
  Sender: FDA-Public Use
  Company Number: PHFR2011GB01975

PATIENT
  Sex: Male

DRUGS (3)
  1. CLOZAPINE [Suspect]
     Indication: SCHIZOPHRENIA
     Dosage: 400 MG
     Route: 048
     Dates: start: 20090716
  2. CLOZAPINE [Suspect]
     Dosage: 375 MG/DAY
     Route: 048
  3. FLUOXETINE [Concomitant]
     Dosage: 20 MG, UNK
     Route: 048

REACTIONS (6)
  - LOWER RESPIRATORY TRACT INFECTION [None]
  - ASTHMA [None]
  - ELECTROCARDIOGRAM QT PROLONGED [None]
  - ORTHOSTATIC HYPOTENSION [None]
  - SUPRAVENTRICULAR EXTRASYSTOLES [None]
  - ANTIPSYCHOTIC DRUG LEVEL ABOVE THERAPEUTIC [None]
